FAERS Safety Report 10956555 (Version 1)
Quarter: 2015Q1

REPORT INFORMATION
  Report Type: Spontaneous
  Country: US (occurrence: None)
  Receive Date: 20150325
  Receipt Date: 20150325
  Transmission Date: 20150721
  Serious: No
  Sender: FDA-Public Use
  Company Number: None

PATIENT
  Sex: Female
  Weight: 49.9 kg

DRUGS (8)
  1. CITRICAL [Concomitant]
     Active Substance: CALCIUM CITRATE
  2. VIT C-A-B-D3-E [Concomitant]
  3. ZINC [Concomitant]
     Active Substance: ZINC\ZINC CHLORIDE
  4. LATANOPROST. [Concomitant]
     Active Substance: LATANOPROST
  5. PREMARIN [Concomitant]
     Active Substance: ESTROGENS, CONJUGATED
  6. GARLIC. [Concomitant]
     Active Substance: GARLIC
  7. LYRICA [Suspect]
     Active Substance: PREGABALIN
     Route: 048
  8. FISH OIL [Concomitant]
     Active Substance: FISH OIL

REACTIONS (2)
  - Tremor [None]
  - Heart rate increased [None]
